FAERS Safety Report 18606089 (Version 1)
Quarter: 2020Q4

REPORT INFORMATION
  Report Type: Spontaneous
  Country: US (occurrence: US)
  Receive Date: 20201211
  Receipt Date: 20201211
  Transmission Date: 20210114
  Serious: No
  Sender: FDA-Public Use
  Company Number: US-TEVA-2020-US-1857546

PATIENT

DRUGS (2)
  1. DOCETAXEL. [Suspect]
     Active Substance: DOCETAXEL
     Dosage: FORM OF ADMIN: DOCETAXEL INJECTION CONCENTRATE
     Route: 065
     Dates: start: 201402, end: 201602
  2. DOCETAXEL. [Suspect]
     Active Substance: DOCETAXEL
     Route: 065
     Dates: start: 201402, end: 201602

REACTIONS (3)
  - Alopecia [Unknown]
  - Madarosis [Unknown]
  - Alopecia areata [Unknown]
